FAERS Safety Report 8997062 (Version 2)
Quarter: 2013Q1

REPORT INFORMATION
  Report Type: Spontaneous
  Country: CA (occurrence: CA)
  Receive Date: 20130104
  Receipt Date: 20130215
  Transmission Date: 20140127
  Serious: Yes (Other)
  Sender: FDA-Public Use
  Company Number: CA-GLAXOSMITHKLINE-A1003607A

PATIENT
  Sex: Female
  Weight: 56.8 kg

DRUGS (3)
  1. NICORETTE [Suspect]
     Indication: SMOKING CESSATION THERAPY
     Dosage: 2MG SEE DOSAGE TEXT
     Route: 002
     Dates: start: 201004
  2. NICORETTE [Suspect]
     Indication: SMOKING CESSATION THERAPY
     Dosage: 4MG SEE DOSAGE TEXT
     Route: 002
     Dates: start: 201004
  3. VITAMINS [Concomitant]

REACTIONS (9)
  - Tooth abscess [Not Recovered/Not Resolved]
  - Dental caries [Not Recovered/Not Resolved]
  - Intentional drug misuse [Unknown]
  - Drug administration error [Unknown]
  - Tooth injury [Unknown]
  - Tooth extraction [Unknown]
  - Tooth erosion [Unknown]
  - Nicotine dependence [Unknown]
  - Overdose [Unknown]
